FAERS Safety Report 4652008-9 (Version None)
Quarter: 2005Q2

REPORT INFORMATION
  Report Type: 
  Country: None (occurrence: None)
  Receive Date: 20050504
  Receipt Date: 20050421
  Transmission Date: 20051028
  Serious: Yes (Disabling)
  Sender: FDA-Public Use
  Company Number: US-BOEHRINGER INGELHEIM PHARMACEUTICALS, INC.-2005-BP-06650BP

PATIENT
  Sex: Female

DRUGS (8)
  1. SPIRIVA [Suspect]
     Indication: CHRONIC OBSTRUCTIVE PULMONARY DISEASE
     Route: 055
     Dates: start: 20050101, end: 20050421
  2. NITRO-DUR [Concomitant]
     Route: 048
     Dates: start: 20050401
  3. SYNTHROID [Concomitant]
     Route: 048
  4. METOPROLOL [Concomitant]
     Route: 048
  5. DIAZEPAM [Concomitant]
     Route: 048
  6. ACETASOL HC [Concomitant]
     Route: 048
  7. ALBUTEROL [Concomitant]
     Route: 055
  8. HYDROCHLOROTHIAZIDE [Concomitant]

REACTIONS (4)
  - BLINDNESS [None]
  - DRY MOUTH [None]
  - MACULAR DEGENERATION [None]
  - VISION BLURRED [None]
